FAERS Safety Report 8209692-2 (Version None)
Quarter: 2012Q1

REPORT INFORMATION
  Report Type: 
  Country: None (occurrence: None)
  Receive Date: 20120314
  Receipt Date: 20120301
  Transmission Date: 20120608
  Serious: Yes (Other)
  Sender: FDA-Public Use
  Company Number: ES-MYLANLABS-2012S1004863

PATIENT
  Age: 43 Year
  Sex: Female

DRUGS (5)
  1. TRANEXAMIC ACID [Concomitant]
     Indication: VON WILLEBRAND'S DISEASE
     Route: 065
  2. DESMOPRESSIN ACETATE [Concomitant]
     Indication: VON WILLEBRAND'S DISEASE
     Route: 065
  3. AMITRIPTYLINE HCL [Suspect]
     Indication: PROCEDURAL PAIN
     Dosage: 75MG WITH DINNER
     Route: 048
  4. FENTANYL [Concomitant]
     Indication: PROCEDURAL PAIN
     Dosage: 75 MCG EVERY 72H
     Route: 062
  5. ACETAMINOPHEN [Concomitant]
     Indication: PROCEDURAL PAIN
     Dosage: 1 G/6-8H
     Route: 048

REACTIONS (1)
  - PLATELET DISORDER [None]
